FAERS Safety Report 4656004-7 (Version None)
Quarter: 2005Q2

REPORT INFORMATION
  Report Type: 
  Country: None (occurrence: None)
  Receive Date: 20050505
  Receipt Date: 20050419
  Transmission Date: 20051028
  Serious: Yes (Other)
  Sender: FDA-Public Use
  Company Number: PHRM2005FR01140

PATIENT
  Age: 80 Year
  Sex: Female

DRUGS (7)
  1. VISUDYNE [Suspect]
     Indication: POLYPOIDAL CHOROIDAL VASCULOPATHY
     Dosage: 4.3 MG DAILY IV
     Route: 042
     Dates: start: 20041203, end: 20041203
  2. COAPROVEL [Concomitant]
  3. SOTALOL HCL [Concomitant]
  4. PREVISCAN [Concomitant]
  5. ACTONEL [Concomitant]
  6. STILNOX [Concomitant]
  7. TAREG [Concomitant]

REACTIONS (10)
  - ALANINE AMINOTRANSFERASE INCREASED [None]
  - ASPARTATE AMINOTRANSFERASE INCREASED [None]
  - AUTOIMMUNE HEPATITIS [None]
  - BILIARY TRACT DISORDER [None]
  - BLOOD ALKALINE PHOSPHATASE INCREASED [None]
  - BLOOD IRON ABNORMAL [None]
  - FATIGUE [None]
  - GAMMA-GLUTAMYLTRANSFERASE INCREASED [None]
  - PRURITUS [None]
  - SMOOTH MUSCLE ANTIBODY POSITIVE [None]
